FAERS Safety Report 7708305-3 (Version None)
Quarter: 2011Q3

REPORT INFORMATION
  Report Type: 
  Country: None (occurrence: None)
  Receive Date: 20110825
  Receipt Date: 20110815
  Transmission Date: 20111222
  Serious: Yes (Hospitalization, Other)
  Sender: FDA-Public Use
  Company Number: BR-BRISTOL-MYERS SQUIBB COMPANY-15980030

PATIENT
  Age: 70 Year
  Sex: Female
  Weight: 63 kg

DRUGS (9)
  1. CLOPIDOGREL BISULFATE [Concomitant]
     Dosage: TABLET
     Route: 048
  2. IRBESARTAN + HYDROCHLOROTHIAZIDE [Suspect]
     Indication: HYPERTENSION
     Dosage: TAB
     Route: 048
  3. METOPROLOL SUCCINATE [Concomitant]
     Dosage: 50 MG TABLET
     Route: 048
  4. PANTOPRAZOLE [Concomitant]
     Dosage: 20MG TABLET
     Route: 048
  5. ISOFLAVONE [Concomitant]
     Dosage: TABLET
     Route: 048
  6. ASPIRIN [Concomitant]
     Dosage: 1DF IS 1 TAB
     Route: 048
  7. ATORVASTATIN CALCIUM [Concomitant]
     Dosage: DF IS TABLET (40MG)
     Route: 048
  8. OLCADIL [Concomitant]
     Dosage: TABLET
     Route: 048
  9. SERTRALINE HYDROCHLORIDE [Concomitant]
     Indication: ANXIETY
     Dosage: 1 DF IS 0.5 TABLET
     Route: 048

REACTIONS (10)
  - BACK PAIN [None]
  - MYOCARDIAL INFARCTION [None]
  - APHASIA [None]
  - PAIN IN EXTREMITY [None]
  - SYNCOPE [None]
  - CEREBROVASCULAR ACCIDENT [None]
  - CORONARY ARTERY OCCLUSION [None]
  - CHEST PAIN [None]
  - HYPERHIDROSIS [None]
  - VOMITING [None]
